FAERS Safety Report 5648160-9 (Version None)
Quarter: 2008Q1

REPORT INFORMATION
  Report Type: 
  Country: None (occurrence: None)
  Receive Date: 20080229
  Receipt Date: 20080213
  Transmission Date: 20080703
  Serious: Yes (Other)
  Sender: FDA-Public Use
  Company Number: PAR_02116_2008

PATIENT
  Age: 29 Year
  Sex: Female
  Weight: 92 kg

DRUGS (1)
  1. DOXYCYCLINE [Suspect]
     Indication: ACNE
     Dosage: (DF)

REACTIONS (3)
  - BENIGN INTRACRANIAL HYPERTENSION [None]
  - INTRACRANIAL PRESSURE INCREASED [None]
  - VISUAL ACUITY REDUCED [None]
